FAERS Safety Report 9752987 (Version 1)
Quarter: 2013Q4

REPORT INFORMATION
  Report Type: Spontaneous
  Country: US (occurrence: US)
  Receive Date: 20131213
  Receipt Date: 20131213
  Transmission Date: 20140711
  Serious: Yes (Hospitalization)
  Sender: FDA-Public Use
  Company Number: US-JNJFOC-20131205703

PATIENT
  Sex: 0

DRUGS (1)
  1. REMICADE [Suspect]
     Indication: PRODUCT USED FOR UNKNOWN INDICATION
     Dosage: MOTHER RECEIVED REMICADE UNTIL 26TH WEEK OF PREGNANCY
     Route: 064

REACTIONS (3)
  - Colitis [Unknown]
  - Duodenitis [Unknown]
  - Foetal exposure during pregnancy [Unknown]
